FAERS Safety Report 22007490 (Version 1)
Quarter: 2023Q1

REPORT INFORMATION
  Report Type: Spontaneous
  Country: US (occurrence: US)
  Receive Date: 20230218
  Receipt Date: 20230218
  Transmission Date: 20230418
  Serious: No
  Sender: FDA-Public Use
  Company Number: US-ABBVIE-4311599

PATIENT
  Sex: Male

DRUGS (11)
  1. VENCLEXTA [Suspect]
     Active Substance: VENETOCLAX
     Indication: Myelodysplastic syndrome
     Dosage: 1T PO QD D1-14 OF 28D CYCLE #14 + 11RF
     Route: 048
     Dates: start: 20221130
  2. Noxafil 100 mg [Concomitant]
     Indication: Product used for unknown indication
     Dosage: 3 TABLET BY MOUTH DAILY WITH BREAKFAST
     Route: 048
     Dates: start: 20221019
  3. Adcirca/ cialis [Concomitant]
     Indication: Product used for unknown indication
     Dosage: FREQUENCY TEXT: TAKE 20 MG BY MOUTH AS NEEDED
     Route: 048
     Dates: start: 20220819
  4. ZOFRAN [Concomitant]
     Active Substance: ONDANSETRON HYDROCHLORIDE
     Indication: Nausea
     Route: 048
     Dates: start: 20221122
  5. NEXIUM [Concomitant]
     Active Substance: ESOMEPRAZOLE MAGNESIUM
     Indication: Product used for unknown indication
     Dosage: 20MG BY MOUTH DAILY BEFORE BREAKFAST
     Route: 048
  6. LEVAQUIN [Concomitant]
     Active Substance: LEVOFLOXACIN
     Indication: Product used for unknown indication
     Route: 048
     Dates: start: 20221014
  7. PATANASE [Concomitant]
     Active Substance: OLOPATADINE HYDROCHLORIDE
     Indication: Hypersensitivity
  8. COMPAZINE [Concomitant]
     Active Substance: PROCHLORPERAZINE MALEATE
     Indication: Vomiting
     Dosage: FREQUENCY TEXT: 1 TABLET BY MOUTH EVERY 6 HRS AS NEEDED
     Route: 048
     Dates: start: 20221122
  9. HYZAAR [Concomitant]
     Active Substance: HYDROCHLOROTHIAZIDE\LOSARTAN POTASSIUM
     Indication: Product used for unknown indication
     Dosage: 50-12.5MG TABLET
     Route: 048
     Dates: start: 20220516
  10. Centrum Silver men [Concomitant]
     Indication: Product used for unknown indication
     Route: 048
  11. ZOVIRAX [Concomitant]
     Active Substance: ACYCLOVIR
     Indication: Product used for unknown indication
     Dosage: FREQUENCY TEXT: 1 TABLET BY MOUTH EVERY 8 HR AS NEEDED
     Route: 048
     Dates: start: 20221122

REACTIONS (2)
  - Off label use [Unknown]
  - Product prescribing error [Unknown]
